FAERS Safety Report 18012617 (Version 3)
Quarter: 2020Q4

REPORT INFORMATION
  Report Type: Spontaneous
  Country: FR (occurrence: FR)
  Receive Date: 20200713
  Receipt Date: 20201112
  Transmission Date: 20210113
  Serious: Yes (Death, Life-Threatening, Hospitalization, Other)
  Sender: FDA-Public Use
  Company Number: FR-BRISTOL-MYERS SQUIBB COMPANY-BMS-2020-054223

PATIENT
  Age: 68 Year
  Sex: Female
  Weight: 38 kg

DRUGS (2)
  1. ELIQUIS [Suspect]
     Active Substance: APIXABAN
     Dosage: 2.5 MILLIGRAM, BID
     Route: 048
     Dates: start: 20200706, end: 20200714
  2. ELIQUIS [Suspect]
     Active Substance: APIXABAN
     Indication: CEREBROVASCULAR ACCIDENT PROPHYLAXIS
     Dosage: 5 MILLIGRAM, BID
     Route: 048
     Dates: start: 20200624, end: 20200705

REACTIONS (7)
  - Treatment noncompliance [Unknown]
  - Anaemia [Unknown]
  - Thrombocytopenia [Fatal]
  - Fall [Unknown]
  - Periorbital haematoma [Unknown]
  - Prescribed underdose [Unknown]
  - Platelet adhesiveness increased [Unknown]

NARRATIVE: CASE EVENT DATE: 20200629
